FAERS Safety Report 22382351 (Version 6)
Quarter: 2023Q4

REPORT INFORMATION
  Report Type: Spontaneous
  Country: JP (occurrence: JP)
  Receive Date: 20230530
  Receipt Date: 20231013
  Transmission Date: 20240110
  Serious: Yes (Life-Threatening, Hospitalization, Disabling, Other)
  Sender: FDA-Public Use
  Company Number: JP-002147023-NVSJ2023JP008464

PATIENT
  Age: 85 Year
  Sex: Male
  Weight: 47.7 kg

DRUGS (4)
  1. TAFINLAR [Suspect]
     Active Substance: DABRAFENIB MESYLATE
     Indication: Malignant melanoma
     Dosage: 150 MG, BID
     Route: 048
     Dates: start: 20230126, end: 20230209
  2. TAFINLAR [Suspect]
     Active Substance: DABRAFENIB MESYLATE
     Dosage: 150 MG, MORNING
     Route: 048
     Dates: start: 20230523, end: 20230523
  3. MEKINIST [Suspect]
     Active Substance: TRAMETINIB DIMETHYL SULFOXIDE
     Indication: Malignant melanoma
     Dosage: 2 MG, QD
     Route: 048
     Dates: start: 20230126, end: 20230209
  4. KEYTRUDA [Suspect]
     Active Substance: PEMBROLIZUMAB
     Indication: Malignant melanoma
     Dosage: 200 MG, QD
     Route: 041
     Dates: start: 20220609, end: 20230105

REACTIONS (14)
  - Anaphylactic reaction [Recovered/Resolved]
  - Rash [Recovered/Resolved]
  - Chills [Recovered/Resolved]
  - Abdominal pain [Recovered/Resolved]
  - Headache [Unknown]
  - Dyspnoea [Unknown]
  - Hypersensitivity [Recovered/Resolved]
  - Nephropathy toxic [Recovering/Resolving]
  - Drug-induced liver injury [Recovering/Resolving]
  - Blood pressure increased [Recovered/Resolved]
  - Lymphocyte count decreased [Unknown]
  - Infection [Unknown]
  - White blood cell count increased [Unknown]
  - Neutrophil count increased [Unknown]

NARRATIVE: CASE EVENT DATE: 20230201
